FAERS Safety Report 20335968 (Version 1)
Quarter: 2022Q1

REPORT INFORMATION
  Report Type: Spontaneous
  Country: DE (occurrence: DE)
  Receive Date: 20220114
  Receipt Date: 20220114
  Transmission Date: 20220423
  Serious: Yes (Other)
  Sender: FDA-Public Use
  Company Number: None

PATIENT
  Age: 5 Year
  Sex: Male
  Weight: 22 kg

DRUGS (1)
  1. ALBUTEROL [Suspect]
     Active Substance: ALBUTEROL
     Indication: Bronchitis
     Dosage: 3XTGL 7 DROPS IN 2ML NACL, 7GTT
     Route: 055
     Dates: start: 202112, end: 20211224

REACTIONS (5)
  - Hallucination [Recovering/Resolving]
  - Anxiety [Recovering/Resolving]
  - Vomiting [Unknown]
  - Panic attack [Recovering/Resolving]
  - Abnormal behaviour [Unknown]

NARRATIVE: CASE EVENT DATE: 20211201
